FAERS Safety Report 25148373 (Version 1)
Quarter: 2025Q2

REPORT INFORMATION
  Report Type: Spontaneous
  Country: FR (occurrence: FR)
  Receive Date: 20250402
  Receipt Date: 20250402
  Transmission Date: 20250716
  Serious: Yes (Death)
  Sender: BIOCODEX
  Company Number: FR-BIOCODEX2-2005000174

PATIENT

DRUGS (1)
  1. STIRIPENTOL [Suspect]
     Active Substance: STIRIPENTOL
     Indication: Severe myoclonic epilepsy of infancy
     Route: 065

REACTIONS (1)
  - Death [Fatal]
